FAERS Safety Report 7372003-9 (Version None)
Quarter: 2011Q1

REPORT INFORMATION
  Report Type: 
  Country: None (occurrence: None)
  Receive Date: 20110324
  Receipt Date: 20100602
  Transmission Date: 20110831
  Serious: No
  Sender: FDA-Public Use
  Company Number: US-BAUSCH-2010BL002967

PATIENT
  Age: 60 Year
  Sex: Female
  Weight: 99 kg

DRUGS (1)
  1. POLYMYXIN B SULFATES AND TRIMETHOPRIM SULFATE [Suspect]
     Indication: EYE INFECTION
     Route: 047
     Dates: start: 20100531, end: 20100601

REACTIONS (6)
  - ERYTHEMA [None]
  - DRY SKIN [None]
  - EYE IRRITATION [None]
  - EYE PRURITUS [None]
  - SKIN CHAPPED [None]
  - VISION BLURRED [None]
